FAERS Safety Report 9271481 (Version 1)
Quarter: 2013Q2

REPORT INFORMATION
  Report Type: Spontaneous
  Country: US (occurrence: US)
  Receive Date: 20130506
  Receipt Date: 20130506
  Transmission Date: 20140414
  Serious: No
  Sender: FDA-Public Use
  Company Number: US-PFIZER INC-2013137814

PATIENT
  Age: 81 Year
  Sex: Male
  Weight: 73.47 kg

DRUGS (1)
  1. CELEBREX [Suspect]
     Indication: ARTHRITIS
     Dosage: 100 MG, 1X/DAY
     Route: 048
     Dates: start: 201304

REACTIONS (2)
  - Joint swelling [Recovered/Resolved]
  - Local swelling [Recovered/Resolved]
